FAERS Safety Report 12079546 (Version 2)
Quarter: 2016Q1

REPORT INFORMATION
  Report Type: Spontaneous
  Country: US (occurrence: US)
  Receive Date: 20160216
  Receipt Date: 20160331
  Transmission Date: 20160526
  Serious: Yes (Hospitalization, Other)
  Sender: FDA-Public Use
  Company Number: US-PFIZER INC-2016086120

PATIENT
  Age: 65 Year
  Sex: Female

DRUGS (2)
  1. INLYTA [Suspect]
     Active Substance: AXITINIB
     Indication: RENAL CANCER
     Dosage: 5 MG, 2X/DAY
     Route: 048
     Dates: start: 20151119, end: 201603
  2. INLYTA [Suspect]
     Active Substance: AXITINIB
     Dosage: UNK

REACTIONS (6)
  - Cerebrovascular accident [Unknown]
  - Contusion [Unknown]
  - Fall [Unknown]
  - Muscle injury [Unknown]
  - Dizziness postural [Unknown]
  - Myalgia [Unknown]

NARRATIVE: CASE EVENT DATE: 20160210
